FAERS Safety Report 9874427 (Version 3)
Quarter: 2014Q2

REPORT INFORMATION
  Report Type: Spontaneous
  Country: SE (occurrence: SE)
  Receive Date: 20140206
  Receipt Date: 20140515
  Transmission Date: 20141212
  Serious: Yes (Other)
  Sender: FDA-Public Use
  Company Number: SE-ROCHE-1344833

PATIENT
  Age: 70 Year
  Sex: Female

DRUGS (3)
  1. XOLAIR [Suspect]
     Indication: PRODUCT USED FOR UNKNOWN INDICATION
     Route: 065
     Dates: start: 200805, end: 201308
  2. XOLAIR [Suspect]
     Route: 065
     Dates: start: 20140109
  3. SYMBICORT [Concomitant]

REACTIONS (8)
  - Osteoporosis [Unknown]
  - Type 2 diabetes mellitus [Unknown]
  - Myalgia [Unknown]
  - Thrombosis [Unknown]
  - Immune thrombocytopenic purpura [Unknown]
  - Injection site mass [Recovered/Resolved]
  - Application site bruise [Recovered/Resolved]
  - Drug ineffective [Unknown]
